FAERS Safety Report 8590748-X (Version None)
Quarter: 2012Q3

REPORT INFORMATION
  Report Type: 
  Country: None (occurrence: None)
  Receive Date: 20120813
  Receipt Date: 20120803
  Transmission Date: 20120928
  Serious: Yes (Disabling)
  Sender: FDA-Public Use
  Company Number: US-009507513-1208USA002134

PATIENT

DRUGS (2)
  1. RISPERIDONE [Suspect]
  2. TRILAFON [Suspect]

REACTIONS (3)
  - MENTAL DISORDER [None]
  - PAIN [None]
  - NERVOUS SYSTEM DISORDER [None]
